FAERS Safety Report 12142329 (Version 2)
Quarter: 2016Q1

REPORT INFORMATION
  Report Type: Spontaneous
  Country: IT (occurrence: IT)
  Receive Date: 20160303
  Receipt Date: 20160307
  Transmission Date: 20160526
  Serious: Yes (Hospitalization, Other)
  Sender: FDA-Public Use
  Company Number: IT-009507513-1603ITA001214

PATIENT
  Age: 36 Year
  Sex: Female

DRUGS (4)
  1. NIMESULIDE [Suspect]
     Active Substance: NIMESULIDE
     Indication: MIGRAINE
     Dosage: UNK, QD
     Route: 048
     Dates: start: 20151101, end: 20160222
  2. MAXALT [Suspect]
     Active Substance: RIZATRIPTAN BENZOATE
     Indication: MIGRAINE
     Dosage: 1 DOSE (UNIT), QD
     Route: 048
     Dates: start: 20151101, end: 20160222
  3. INDOXEN [Suspect]
     Active Substance: INDOMETHACIN
     Indication: MIGRAINE
     Dosage: UNK, QD
     Route: 048
     Dates: start: 20151101, end: 20160222
  4. CYMBALTA [Concomitant]
     Active Substance: DULOXETINE HYDROCHLORIDE
     Dosage: UNK

REACTIONS (4)
  - Gamma-glutamyltransferase increased [Recovering/Resolving]
  - Alanine aminotransferase increased [Recovering/Resolving]
  - Headache [Recovering/Resolving]
  - Drug abuse [Recovering/Resolving]

NARRATIVE: CASE EVENT DATE: 20160222
